FAERS Safety Report 15184845 (Version 1)
Quarter: 2018Q3

REPORT INFORMATION
  Report Type: Spontaneous
  Country: US (occurrence: US)
  Receive Date: 20180723
  Receipt Date: 20180723
  Transmission Date: 20181010
  Serious: No
  Sender: FDA-Public Use
  Company Number: US-AMGEN-USASP2018095178

PATIENT
  Age: 68 Year
  Sex: Male

DRUGS (7)
  1. ATENOLOL. [Concomitant]
     Active Substance: ATENOLOL
     Dosage: 25 MG, UNK
  2. PERCOCET [Concomitant]
     Active Substance: ACETAMINOPHEN\OXYCODONE HYDROCHLORIDE
     Dosage: 10?325 MG, UNK
  3. REPATHA [Suspect]
     Active Substance: EVOLOCUMAB
     Indication: CAROTID ARTERY STENOSIS
  4. DIAZEPAM. [Concomitant]
     Active Substance: DIAZEPAM
     Dosage: 10 MG, UNK
  5. NITROSTAT [Concomitant]
     Active Substance: NITROGLYCERIN
     Dosage: 0.4 MG, UNK
  6. REPATHA [Suspect]
     Active Substance: EVOLOCUMAB
     Indication: CAROTID ARTERY OCCLUSION
     Dosage: 140 MG, Q2WK
     Route: 058
     Dates: start: 201704
  7. MORPHINE SULFATE. [Concomitant]
     Active Substance: MORPHINE SULFATE
     Dosage: 30 MG, UNK

REACTIONS (2)
  - Off label use [Unknown]
  - Rhinorrhoea [Not Recovered/Not Resolved]
